FAERS Safety Report 7927795-4 (Version None)
Quarter: 2011Q4

REPORT INFORMATION
  Report Type: 
  Country: None (occurrence: None)
  Receive Date: 20111118
  Receipt Date: 20111115
  Transmission Date: 20120403
  Serious: Yes (Death, Hospitalization)
  Sender: FDA-Public Use
  Company Number: DE-SANOFI-AVENTIS-2011SA070882

PATIENT
  Age: 67 Year
  Sex: Male

DRUGS (3)
  1. THERAPEUTIC RADIOPHARMACEUTICALS [Suspect]
     Indication: RECTAL CANCER
     Dosage: 28 FRACTIONS OF RADIOTHERAPY AT A DOSE OF 1.8 GY PER FRACTION ENDING UPTO TOTAL OF 50.4 GY
     Route: 065
     Dates: start: 20110523, end: 20110704
  2. CAPECITABINE [Suspect]
     Indication: RECTAL CANCER
     Dosage: DOSE: 1000MG/M2 DAY 1-DAY15 OF 3 WEEK CYCLEMORNING DOSE ON 23 DEC 2011: 2000MG
     Route: 048
     Dates: start: 20110523, end: 20111023
  3. OXALIPLATIN [Suspect]
     Indication: RECTAL CANCER
     Route: 042
     Dates: start: 20110523, end: 20111010

REACTIONS (6)
  - DEHYDRATION [None]
  - MULTI-ORGAN FAILURE [None]
  - CARDIOVASCULAR INSUFFICIENCY [None]
  - DIARRHOEA [None]
  - RENAL FAILURE ACUTE [None]
  - SEPTIC SHOCK [None]
